FAERS Safety Report 8544230-6 (Version None)
Quarter: 2012Q3

REPORT INFORMATION
  Report Type: 
  Country: None (occurrence: None)
  Receive Date: 20120727
  Receipt Date: 20120724
  Transmission Date: 20120928
  Serious: Yes (Other)
  Sender: FDA-Public Use
  Company Number: GB-PFIZER INC-2012174465

PATIENT
  Age: 64 Year
  Sex: Male
  Weight: 74 kg

DRUGS (13)
  1. RAMIPRIL [Suspect]
     Indication: PRODUCT USED FOR UNKNOWN INDICATION
     Dosage: UNK
     Route: 065
     Dates: start: 20120327
  2. HUMAN INSULATARD [Concomitant]
     Dosage: UNK
     Dates: start: 20120327, end: 20120703
  3. ATORVASTATIN [Concomitant]
     Dosage: UNK
     Dates: start: 20120327
  4. TAMSULOSIN HYDROCHLORIDE [Concomitant]
     Dosage: UNK
     Dates: start: 20120327
  5. CLOPIDOGREL [Concomitant]
     Dosage: UNK
     Dates: start: 20120327
  6. DILTIAZEM [Concomitant]
     Dosage: UNK
     Dates: start: 20120509
  7. IVABRADINE [Concomitant]
     Dosage: UNK
     Dates: start: 20120327, end: 20120521
  8. ISOSORBIDE MONONITRATE [Concomitant]
     Dosage: UNK
     Dates: start: 20120327
  9. SITAGLIPTIN [Concomitant]
     Dosage: UNK
     Dates: start: 20120327
  10. ASPIRIN [Concomitant]
     Dosage: UNK
     Dates: start: 20120327
  11. NITROGLYCERIN [Concomitant]
     Dosage: UNK
     Dates: start: 20120327, end: 20120424
  12. BISOPROLOL FUMARATE [Concomitant]
     Dosage: UNK
     Dates: start: 20120327
  13. GLICLAZIDE [Concomitant]
     Dosage: UNK
     Dates: start: 20120327

REACTIONS (2)
  - ANAPHYLACTOID REACTION [None]
  - PARAESTHESIA [None]
